FAERS Safety Report 22031689 (Version 2)
Quarter: 2023Q1

REPORT INFORMATION
  Report Type: Report from Study
  Country: US (occurrence: US)
  Receive Date: 20230224
  Receipt Date: 20230303
  Transmission Date: 20230417
  Serious: Yes (Hospitalization)
  Sender: FDA-Public Use
  Company Number: US-GBT-020340

PATIENT
  Age: 29 Year
  Sex: Female

DRUGS (5)
  1. OXBRYTA [Suspect]
     Active Substance: VOXELOTOR
     Indication: Sickle cell disease
     Dates: start: 20200504
  2. folic acid (folvite) [Concomitant]
     Indication: Sickle cell disease
     Route: 048
     Dates: start: 20130813
  3. ERGOCALCIFEROL [Concomitant]
     Active Substance: ERGOCALCIFEROL
     Indication: Sickle cell disease
     Dosage: DOSAGE: 50000 U FREQUENCY: WEEKLY
     Dates: start: 20190925
  4. DIPHENHYDRAMINE [Concomitant]
     Active Substance: DIPHENHYDRAMINE
     Indication: Pruritus
     Dosage: DOSAGE: 50 MG/ML
     Route: 042
     Dates: start: 20190820
  5. DIPHENHYDRAMINE [Concomitant]
     Active Substance: DIPHENHYDRAMINE
     Indication: Pruritus
     Dosage: DOSAGE: 25 MG/ML FREQUENCY: ONCE
     Route: 042
     Dates: start: 20190905

REACTIONS (1)
  - Sickle cell anaemia with crisis [Recovered/Resolved]

NARRATIVE: CASE EVENT DATE: 20221126
